FAERS Safety Report 6383685-2 (Version None)
Quarter: 2009Q3

REPORT INFORMATION
  Report Type: 
  Country: None (occurrence: None)
  Receive Date: 20090929
  Receipt Date: 20090929
  Transmission Date: 20100115
  Serious: Yes (Other)
  Sender: FDA-Public Use
  Company Number: None

PATIENT
  Age: 89 Year
  Sex: Female
  Weight: 42 kg

DRUGS (13)
  1. DILAUDID [Suspect]
     Indication: BACK PAIN
     Dosage: 0.5 MG Q 1 H PRN IV
     Route: 042
     Dates: start: 20090830, end: 20090831
  2. APAP TAB [Concomitant]
  3. DIAZEPAM [Concomitant]
  4. DOCUSATE SODIUM [Concomitant]
  5. HYDROCORTISONE CREAM [Concomitant]
  6. LEVOBUNOLOL HCL [Concomitant]
  7. MAGNESIUM HYDROXIDE TAB [Concomitant]
  8. ODANSETRON [Concomitant]
  9. SENNOSIDES [Concomitant]
  10. TEMAZEPAM [Concomitant]
  11. ENOXAPARIN [Concomitant]
  12. GUAIFENESIN [Concomitant]
  13. MULTI-VITAMIN [Concomitant]

REACTIONS (3)
  - DRUG ERUPTION [None]
  - PRURITUS GENERALISED [None]
  - URTICARIA [None]
